FAERS Safety Report 5967601-0 (Version None)
Quarter: 2008Q4

REPORT INFORMATION
  Report Type: 
  Country: None (occurrence: None)
  Receive Date: 20081126
  Receipt Date: 20081113
  Transmission Date: 20090506
  Serious: Yes (Other)
  Sender: FDA-Public Use
  Company Number: PHHO2007MX15334

PATIENT
  Sex: Male

DRUGS (9)
  1. STALEVO 100 [Suspect]
     Indication: PARKINSON'S DISEASE
     Dosage: 3 TABLETS (50/12.5/200/DAY
     Route: 048
  2. PARLODEL [Concomitant]
     Indication: PARKINSON'S DISEASE
     Dosage: 2.5
  3. PARLODEL [Concomitant]
     Dosage: 5 MG
  4. NEXIUM [Concomitant]
     Indication: DRUG TOXICITY PROPHYLAXIS
     Dosage: 1 TABLET PER DAY
  5. PLAVIX [Concomitant]
     Indication: PARKINSON'S DISEASE
     Dosage: 1 TABLET PER DAY
  6. SIFROL [Concomitant]
     Indication: PARKINSON'S DISEASE
     Dosage: 2 TABLETS (2.5 MG) PER DAY
  7. TAMBOCOR [Concomitant]
     Indication: CARDIAC DISORDER
     Dosage: 2 TABLETS (100 MG) PER DAY
  8. LIPITOR [Concomitant]
     Indication: HYPERTENSION
     Dosage: 1 TABLET PER DAY
  9. ASPIRIN [Concomitant]
     Indication: HYPERTENSION
     Dosage: 1 TABLET PER DAY

REACTIONS (5)
  - BLINDNESS [None]
  - CATARACT OPERATION [None]
  - DEAFNESS [None]
  - HYPERSOMNIA [None]
  - PHOTOPHOBIA [None]
